FAERS Safety Report 15419695 (Version 2)
Quarter: 2020Q1

REPORT INFORMATION
  Report Type: Spontaneous
  Country: IT (occurrence: IT)
  Receive Date: 20180924
  Receipt Date: 20200226
  Transmission Date: 20200409
  Serious: Yes (Other)
  Sender: FDA-Public Use
  Company Number: IT-PFIZER INC-2018380041

PATIENT
  Age: 86 Year
  Sex: Female

DRUGS (3)
  1. FENTANEST [Suspect]
     Active Substance: FENTANYL CITRATE
     Indication: POST-TRAUMATIC PAIN
     Dosage: 1 DF, SINGLE
     Route: 042
     Dates: start: 20180821, end: 20180821
  2. PANTOPRAZOLE [Concomitant]
     Active Substance: PANTOPRAZOLE
     Dosage: UNK
  3. LISINOPRIL. [Concomitant]
     Active Substance: LISINOPRIL
     Dosage: UNK

REACTIONS (3)
  - Hallucination, visual [Recovered/Resolved]
  - Disorientation [Recovered/Resolved]
  - Psychomotor hyperactivity [Recovered/Resolved]

NARRATIVE: CASE EVENT DATE: 20180821
